FAERS Safety Report 19163329 (Version 1)
Quarter: 2021Q2

REPORT INFORMATION
  Report Type: Spontaneous
  Country: US (occurrence: US)
  Receive Date: 20210419
  Receipt Date: 20210419
  Transmission Date: 20210717
  Serious: Yes (Other)
  Sender: FDA-Public Use
  Company Number: None

PATIENT
  Age: 27 Year
  Sex: Male
  Weight: 122.92 kg

DRUGS (4)
  1. FISH OIL [Concomitant]
     Active Substance: FISH OIL
  2. CO29,10 [Concomitant]
  3. OMEPRAZOLE 20MG DELAYED RELEASE CAPSULE [Suspect]
     Active Substance: OMEPRAZOLE
     Indication: HELICOBACTER INFECTION
     Dosage: ?          QUANTITY:90 DF DOSAGE FORM;OTHER FREQUENCY:ONCE IN MORNING;?
     Route: 048
     Dates: start: 20200424, end: 20200624
  4. GABAPENTIN. [Concomitant]
     Active Substance: GABAPENTIN

REACTIONS (9)
  - Hypertensive crisis [None]
  - Dysarthria [None]
  - Dizziness [None]
  - Hot flush [None]
  - Flushing [None]
  - Tachycardia [None]
  - Temperature intolerance [None]
  - Asthenia [None]
  - Night sweats [None]

NARRATIVE: CASE EVENT DATE: 20200524
